FAERS Safety Report 5284266-4 (Version None)
Quarter: 2007Q2

REPORT INFORMATION
  Report Type: 
  Country: None (occurrence: None)
  Receive Date: 20070403
  Receipt Date: 20070327
  Transmission Date: 20071010
  Serious: Yes (Life-Threatening, Hospitalization)
  Sender: FDA-Public Use
  Company Number: PHEH2007US00581

PATIENT
  Age: 56 Year
  Sex: Male
  Weight: 92.97 kg

DRUGS (16)
  1. CLOZARIL [Suspect]
     Indication: SCHIZOPHRENIA
     Dosage: 100 MG, QD
     Route: 048
     Dates: start: 19951106, end: 20061116
  2. CLOZARIL [Suspect]
     Dosage: 350 MG, QHS
     Route: 048
     Dates: start: 19951106, end: 20061116
  3. BUSPAR [Concomitant]
     Indication: ANXIETY
     Dosage: 20 MG, QD
     Dates: start: 19950113, end: 20061115
  4. FOLIC ACID [Concomitant]
  5. VENTOLIN [Concomitant]
  6. AGGRENOX [Concomitant]
     Dosage: 1 UNK, BID
  7. ALLOPURINOL [Concomitant]
  8. COLACE [Concomitant]
  9. THEO-DUR [Concomitant]
     Dosage: 100 MG, BID
  10. LACTULOSE [Concomitant]
  11. LIPITOR [Concomitant]
  12. TOPAMAX [Concomitant]
  13. PROZAC [Concomitant]
     Indication: DEPRESSION
     Dosage: 50 MG, QD
     Dates: start: 19950113, end: 20061115
  14. SEROQUEL [Concomitant]
     Indication: PSYCHOTIC DISORDER
     Dosage: 1200 MG, QD
     Route: 048
     Dates: start: 20020207, end: 20061115
  15. KLONOPIN [Concomitant]
     Dates: start: 20000927, end: 20071116
  16. METOPROLOL SUCCINATE [Concomitant]
     Dosage: 125 MG, QD
     Route: 048

REACTIONS (13)
  - ABDOMINAL DISTENSION [None]
  - ABDOMINAL X-RAY [None]
  - ASTHMA [None]
  - COLONOSCOPY [None]
  - CONSTIPATION [None]
  - DIABETES MELLITUS [None]
  - DYSPNOEA [None]
  - ILEUS PARALYTIC [None]
  - INTESTINAL OBSTRUCTION [None]
  - LABORATORY TEST ABNORMAL [None]
  - OEDEMA PERIPHERAL [None]
  - RENAL FAILURE [None]
  - SURGERY [None]
